FAERS Safety Report 24700719 (Version 1)
Quarter: 2024Q4

REPORT INFORMATION
  Report Type: Spontaneous
  Country: US (occurrence: US)
  Receive Date: 20241205
  Receipt Date: 20241205
  Transmission Date: 20250114
  Serious: No
  Sender: NOVARTIS
  Company Number: US-002147023-NVSC2024US228137

PATIENT

DRUGS (3)
  1. KESIMPTA [Suspect]
     Active Substance: OFATUMUMAB
     Indication: Relapsing multiple sclerosis
     Dosage: UNK UNK, QMO
     Route: 058
  2. Zyrtex [Concomitant]
     Indication: Product used for unknown indication
     Dosage: UNK
     Route: 065
  3. FLONASE [Concomitant]
     Active Substance: FLUTICASONE PROPIONATE
     Indication: Product used for unknown indication
     Dosage: UNK
     Route: 065

REACTIONS (7)
  - Infection [Unknown]
  - Vision blurred [Unknown]
  - Photopsia [Unknown]
  - Headache [Unknown]
  - Ophthalmic migraine [Unknown]
  - Paranasal sinus discomfort [Unknown]
  - Ear pain [Unknown]
